FAERS Safety Report 9455368 (Version 2)
Quarter: 2013Q4

REPORT INFORMATION
  Report Type: Report from Study
  Country: JP (occurrence: JP)
  Receive Date: 20130813
  Receipt Date: 20131216
  Transmission Date: 20140711
  Serious: Yes (Hospitalization, Other)
  Sender: FDA-Public Use
  Company Number: PHHY2013JP086538

PATIENT
  Age: 32 Year
  Sex: Male

DRUGS (24)
  1. AFINITOR [Suspect]
     Indication: PANCREATIC NEUROENDOCRINE TUMOUR
     Dosage: 10 MG, DAILY
     Route: 048
     Dates: start: 20120418, end: 20120502
  2. AFINITOR [Suspect]
     Dosage: 10 MG, DAILY
     Route: 048
     Dates: start: 20120516, end: 20120530
  3. AFINITOR [Suspect]
     Dosage: 05 MG, DAILY
     Route: 048
     Dates: start: 20120611, end: 20120903
  4. AFINITOR [Suspect]
     Dosage: 10 MG, DAILY
     Route: 048
     Dates: start: 20121015, end: 20121226
  5. PURSENNIDE [Concomitant]
     Indication: CONSTIPATION
     Route: 048
     Dates: end: 20130319
  6. TAKEPRON [Concomitant]
     Indication: GASTRITIS
     Dosage: 15 MG
     Route: 048
     Dates: start: 201204, end: 20121014
  7. GASMOTIN [Concomitant]
     Indication: GASTRITIS
     Dosage: 15 MG, UNK
     Route: 048
     Dates: end: 20130319
  8. LIPACREON [Concomitant]
     Indication: PANCREATITIS CHRONIC
     Dosage: 1800 MG
     Route: 048
     Dates: end: 20130319
  9. LAC-B [Concomitant]
     Indication: CONSTIPATION
     Dosage: 3 G, UNK
     Route: 048
     Dates: end: 20130319
  10. NEXIUM//ESOMEPRAZOLE MAGNESIUM [Concomitant]
     Indication: GASTROOESOPHAGEAL REFLUX DISEASE
     Dosage: 20 MG, UNK
     Route: 048
     Dates: end: 20130319
  11. TRAMCET [Concomitant]
     Indication: BACK PAIN
     Dosage: 3 DF, UNK
     Route: 048
     Dates: end: 20130319
  12. NOVAMIN [Concomitant]
     Indication: VOMITING
     Dosage: 15 MG, UNK
     Route: 048
     Dates: end: 20130319
  13. NAUZELIN [Concomitant]
     Indication: VOMITING
     Dosage: 30 MG, UNK
     Route: 048
     Dates: end: 20130319
  14. MAGMITT [Concomitant]
     Indication: CONSTIPATION
     Dosage: 990 MG, UNK
     Route: 048
     Dates: end: 20130319
  15. LOXONIN [Concomitant]
     Indication: PAIN
     Route: 048
     Dates: end: 20130318
  16. ALLOID [Concomitant]
     Indication: GASTRITIS
     Dosage: 60 ML, UNK
     Route: 048
     Dates: start: 20130107, end: 20130120
  17. SUTENT [Concomitant]
     Indication: PANCREATIC NEUROENDOCRINE TUMOUR
     Dosage: 37.5 MG, UNK
     Dates: start: 20130121, end: 20130203
  18. RINDERON [Concomitant]
     Indication: VOMITING
     Dosage: 4 MG, UNK
     Route: 048
     Dates: start: 20130314, end: 20130319
  19. OXYCONTIN [Concomitant]
     Indication: PAIN
     Dosage: 40 MG, UNK
     Route: 048
     Dates: start: 20130316, end: 20130319
  20. OXINORM//OXYCODONE HYDROCHLORIDE [Concomitant]
     Route: 048
     Dates: start: 20130316, end: 20130319
  21. FENTOS [Concomitant]
     Indication: PAIN
     Dosage: 1 MG, UNK
     Dates: start: 20130318, end: 20130319
  22. HYPEN [Concomitant]
     Indication: BACK PAIN
     Dosage: 400 MG, UNK
     Route: 048
     Dates: end: 20130319
  23. MUCOSTA [Concomitant]
     Indication: GASTRITIS
  24. CRAVIT [Concomitant]

REACTIONS (7)
  - Anaemia [Recovered/Resolved]
  - C-reactive protein increased [Unknown]
  - Gamma-glutamyltransferase increased [Unknown]
  - Blood alkaline phosphatase increased [Unknown]
  - Blood albumin decreased [Unknown]
  - Malignant neoplasm progression [Unknown]
  - Pancreatic neuroendocrine tumour [Unknown]
